FAERS Safety Report 8364537-5 (Version None)
Quarter: 2012Q2

REPORT INFORMATION
  Report Type: 
  Country: None (occurrence: None)
  Receive Date: 20120514
  Receipt Date: 20120502
  Transmission Date: 20120825
  Serious: Yes (Other)
  Sender: FDA-Public Use
  Company Number: USA/USA/12/0024198

PATIENT
  Age: 63 Year
  Sex: Female
  Weight: 65.318 kg

DRUGS (4)
  1. ASPIRIN [Concomitant]
  2. OMEPRAZOLE MAGNESIUM [Suspect]
     Indication: GASTROOESOPHAGEAL REFLUX DISEASE
     Dosage: 20.6 MG, 1 IN 1 D, ORAL
     Route: 048
     Dates: start: 20120425, end: 20120501
  3. TOPROL-XL [Concomitant]
  4. CALAN [Concomitant]

REACTIONS (4)
  - ARRHYTHMIA [None]
  - HEART RATE DECREASED [None]
  - HEART RATE INCREASED [None]
  - EXTRASYSTOLES [None]
